FAERS Safety Report 25389421 (Version 1)
Quarter: 2025Q2

REPORT INFORMATION
  Report Type: Spontaneous
  Country: FR (occurrence: FR)
  Receive Date: 20250603
  Receipt Date: 20250603
  Transmission Date: 20250717
  Serious: Yes (Hospitalization, Other)
  Sender: HIKMA
  Company Number: None

PATIENT
  Age: 45 Year
  Sex: Female
  Weight: 71 kg

DRUGS (3)
  1. AMIKACIN [Suspect]
     Active Substance: AMIKACIN
     Indication: Mycobacterial infection
     Dosage: 590 MILLIGRAM, QD
     Route: 055
     Dates: start: 20250121, end: 20250407
  2. GANCICLOVIR [Suspect]
     Active Substance: GANCICLOVIR
     Dosage: 1.25 MILLIGRAM/KILOGRAM, QD
     Route: 042
     Dates: start: 20250403, end: 20250404
  3. GANCICLOVIR [Suspect]
     Active Substance: GANCICLOVIR
     Indication: Cytomegalovirus infection
     Dosage: 2.5 MILLIGRAM/KILOGRAM, QD
     Route: 042
     Dates: start: 20250403, end: 20250404

REACTIONS (3)
  - Hypoacusis [Recovered/Resolved]
  - Adverse reaction [Recovered/Resolved]
  - Tinnitus [Recovered/Resolved]

NARRATIVE: CASE EVENT DATE: 20250403
